FAERS Safety Report 9233622 (Version 1)
Quarter: 2013Q2

REPORT INFORMATION
  Report Type: Spontaneous
  Country: US (occurrence: US)
  Receive Date: 20130416
  Receipt Date: 20130416
  Transmission Date: 20140414
  Serious: Yes (Other)
  Sender: FDA-Public Use
  Company Number: US-ABBOTT-13P-163-1076874-00

PATIENT
  Sex: Female

DRUGS (4)
  1. PROMETRIUM [Suspect]
     Indication: PRODUCT USED FOR UNKNOWN INDICATION
     Dates: end: 201208
  2. LYRICA [Suspect]
     Indication: CONVULSION PROPHYLAXIS
     Dates: start: 2009
  3. LYRICA [Suspect]
     Dosage: DOSAGE INCREASED
  4. ESTROGEN [Suspect]
     Indication: PRODUCT USED FOR UNKNOWN INDICATION
     Dates: end: 201208

REACTIONS (3)
  - Convulsion [Recovering/Resolving]
  - Somnolence [Not Recovered/Not Resolved]
  - Feeling abnormal [Not Recovered/Not Resolved]
